FAERS Safety Report 10725481 (Version 1)
Quarter: 2015Q1

REPORT INFORMATION
  Report Type: Spontaneous
  Country: US (occurrence: US)
  Receive Date: 20150121
  Receipt Date: 20150121
  Transmission Date: 20150721
  Serious: No
  Sender: FDA-Public Use
  Company Number: US-GLAXOSMITHKLINE-US2015004253

PATIENT
  Age: 76 Year
  Sex: Female

DRUGS (1)
  1. NICODERM CQ [Suspect]
     Active Substance: NICOTINE
     Indication: SMOKING CESSATION THERAPY
     Route: 062

REACTIONS (5)
  - Application site urticaria [Unknown]
  - Application site reaction [Unknown]
  - Pruritus [Unknown]
  - Middle insomnia [Unknown]
  - Application site erythema [Unknown]

NARRATIVE: CASE EVENT DATE: 201501
